FAERS Safety Report 15908511 (Version 1)
Quarter: 2019Q1

REPORT INFORMATION
  Report Type: Spontaneous
  Country: US (occurrence: US)
  Receive Date: 20190204
  Receipt Date: 20190204
  Transmission Date: 20190417
  Serious: No
  Sender: FDA-Public Use
  Company Number: US-PFIZER INC-2019047204

PATIENT
  Age: 2 Year
  Sex: Female

DRUGS (2)
  1. GENOTROPIN [Suspect]
     Active Substance: SOMATROPIN
     Dosage: 0.3 MG, UNK
  2. GENOTROPIN [Suspect]
     Active Substance: SOMATROPIN
     Dosage: 0.2 MG, DAILY
     Dates: start: 20160219

REACTIONS (13)
  - Anion gap increased [Unknown]
  - Blood urea nitrogen/creatinine ratio increased [Unknown]
  - Blood albumin increased [Unknown]
  - Thyroxine increased [Unknown]
  - Insulin-like growth factor increased [Unknown]
  - Blood calcium increased [Unknown]
  - Blood glucose decreased [Unknown]
  - Thyroxine free decreased [Unknown]
  - Blood potassium increased [Unknown]
  - Blood glucose increased [Unknown]
  - Blood urea increased [Unknown]
  - Thyroxine free increased [Unknown]
  - Thyroxine decreased [Unknown]

NARRATIVE: CASE EVENT DATE: 20170808
